FAERS Safety Report 16229467 (Version 1)
Quarter: 2019Q2

REPORT INFORMATION
  Report Type: Spontaneous
  Country: US (occurrence: US)
  Receive Date: 20190423
  Receipt Date: 20190423
  Transmission Date: 20190711
  Serious: No
  Sender: FDA-Public Use
  Company Number: US-SUNOVION-2019SUN001508

PATIENT
  Sex: Female

DRUGS (1)
  1. LATUDA [Suspect]
     Active Substance: LURASIDONE HYDROCHLORIDE
     Indication: SCHIZOPHRENIA
     Dosage: 40 MG, QD
     Route: 048

REACTIONS (6)
  - Overdose [Unknown]
  - Emphysema [Unknown]
  - Incoherent [Unknown]
  - Poverty of thought content [Unknown]
  - Depressed mood [Unknown]
  - Confusional state [Not Recovered/Not Resolved]
